FAERS Safety Report 6362981-9 (Version None)
Quarter: 2009Q3

REPORT INFORMATION
  Report Type: 
  Country: None (occurrence: None)
  Receive Date: 20090919
  Receipt Date: 20090618
  Transmission Date: 20100115
  Serious: No
  Sender: FDA-Public Use
  Company Number: US-ABBOTT-09P-163-0580955-00

PATIENT
  Sex: Female
  Weight: 81.72 kg

DRUGS (3)
  1. HUMIRA [Suspect]
     Indication: RHEUMATOID ARTHRITIS
     Route: 058
     Dates: start: 20090520
  2. PROZAC [Concomitant]
     Indication: DEPRESSION
     Route: 048
  3. LODINE [Concomitant]
     Indication: PAIN
     Dosage: UNKNOWN
     Route: 048

REACTIONS (1)
  - DRUG DOSE OMISSION [None]
